FAERS Safety Report 11091028 (Version 1)
Quarter: 2015Q2

REPORT INFORMATION
  Report Type: Spontaneous
  Country: DE (occurrence: DE)
  Receive Date: 20150505
  Receipt Date: 20150505
  Transmission Date: 20150821
  Serious: Yes (Other)
  Sender: FDA-Public Use
  Company Number: DE-CIPLA LTD.-2015DE03412

PATIENT

DRUGS (6)
  1. LEUCOVORIN [Suspect]
     Active Substance: LEUCOVORIN
     Indication: PANCREATIC CARCINOMA
     Dosage: 400 MG/M2 ON DAY 1
  2. GEMCITABINE [Suspect]
     Active Substance: GEMCITABINE\GEMCITABINE HYDROCHLORIDE
     Indication: PANCREATIC CARCINOMA
     Dosage: 1,000 MG/M2 ON DAYS 1, 8 AND 15 REPEATED ON DAY 29, TWO CYCLES
     Route: 065
     Dates: start: 201307, end: 201309
  3. IRINOTECAN [Suspect]
     Active Substance: IRINOTECAN
     Indication: PANCREATIC CARCINOMA
     Dosage: 180 MG/M2 ON DAY 1
  4. OXALIPLATIN. [Suspect]
     Active Substance: OXALIPLATIN
     Indication: PANCREATIC CARCINOMA
     Dosage: 85 MG/M2 ON DAY 1
  5. PACLITAXEL. [Suspect]
     Active Substance: PACLITAXEL
     Indication: PANCREATIC CARCINOMA
     Dosage: 125 MG/M2 ON DAYS 1, 8 AND 15 REPEATED ON DAY 29, TWO CYCLES
     Dates: start: 201307, end: 201309
  6. FLUOROURACIL. [Suspect]
     Active Substance: FLUOROURACIL
     Indication: PANCREATIC CARCINOMA
     Dosage: OVER 46 H AT A DOSE OF 2,400 MG/M2.

REACTIONS (4)
  - Neutropenia [Recovered/Resolved]
  - Neuropathy peripheral [Recovered/Resolved]
  - Diarrhoea [Recovered/Resolved]
  - Fatigue [Recovered/Resolved]
